FAERS Safety Report 7485596-8 (Version None)
Quarter: 2011Q2

REPORT INFORMATION
  Report Type: 
  Country: None (occurrence: None)
  Receive Date: 20110517
  Receipt Date: 20110103
  Transmission Date: 20111010
  Serious: Yes (Other)
  Sender: FDA-Public Use
  Company Number: US-BAYER-2011-001506

PATIENT
  Age: 29 Year
  Sex: Female

DRUGS (2)
  1. YASMIN [Suspect]
     Indication: PRODUCT USED FOR UNKNOWN INDICATION
     Dosage: UNK
     Route: 048
     Dates: start: 20070701, end: 20071001
  2. YAZ [Suspect]
     Indication: PRODUCT USED FOR UNKNOWN INDICATION
     Dosage: UNK
     Route: 048
     Dates: start: 20070701, end: 20071001

REACTIONS (4)
  - CEREBELLAR INFARCTION [None]
  - PAIN [None]
  - THALAMIC INFARCTION [None]
  - EMOTIONAL DISTRESS [None]
